FAERS Safety Report 9859275 (Version 1)
Quarter: 2014Q1

REPORT INFORMATION
  Report Type: Spontaneous
  Country: NL (occurrence: NL)
  Receive Date: 20140131
  Receipt Date: 20140131
  Transmission Date: 20141002
  Serious: Yes (Other)
  Sender: FDA-Public Use
  Company Number: NL-JNJFOC-20140113524

PATIENT
  Sex: 0

DRUGS (23)
  1. RISPERIDONE [Suspect]
     Indication: MENTAL DISORDER
     Dosage: MOTHER^S DOSING
     Route: 064
  2. HALOPERIDOL [Suspect]
     Indication: MENTAL DISORDER
     Dosage: MOTHER^S DOSING
     Route: 064
  3. PIPAMPERON [Suspect]
     Indication: MENTAL DISORDER
     Dosage: MOTHER^S DOSING
     Route: 064
  4. CITALOPRAM [Suspect]
     Indication: MENTAL DISORDER
     Dosage: MOTHER^S DOSING
     Route: 064
  5. PAROXETINE [Suspect]
     Indication: MENTAL DISORDER
     Dosage: MOTHER^S DOSING
     Route: 064
  6. FLUVOXAMINE [Suspect]
     Indication: MENTAL DISORDER
     Dosage: MOTHER^S DOSING
     Route: 064
  7. FLUOXETINE [Suspect]
     Indication: MENTAL DISORDER
     Dosage: MOTHER^S DOSING
     Route: 064
  8. ESCITALOPRAM [Suspect]
     Indication: MENTAL DISORDER
     Dosage: MOTHER^S DOSING
     Route: 064
  9. SERTRALINE [Suspect]
     Indication: MENTAL DISORDER
     Dosage: MOTHER^S DOSING
     Route: 064
  10. VENLAFAXINE [Suspect]
     Indication: MENTAL DISORDER
     Dosage: MOTHER^S DOSING
     Route: 064
  11. MIRTAZAPINE [Suspect]
     Indication: MENTAL DISORDER
     Dosage: MOTHER^S DOSING
     Route: 064
  12. CLOMIPRAMINE [Suspect]
     Indication: MENTAL DISORDER
     Dosage: MOTHER^S DOSING
     Route: 064
  13. AMITRIPTYLINE [Suspect]
     Indication: MENTAL DISORDER
     Dosage: MOTHER^S DOSING
     Route: 064
  14. BUPROPION [Suspect]
     Indication: MENTAL DISORDER
     Dosage: MOTHER^S DOSING
     Route: 064
  15. QUETIAPINE [Suspect]
     Indication: MENTAL DISORDER
     Dosage: MOTHER^S DOSING
     Route: 064
  16. OLANZAPINE [Suspect]
     Indication: MENTAL DISORDER
     Dosage: MOTHER^S DOSING
     Route: 064
  17. ARIPIPRAZOLE [Suspect]
     Indication: MENTAL DISORDER
     Dosage: MOTHER^S DOSING
     Route: 064
  18. LITHIUM [Suspect]
     Indication: MENTAL DISORDER
     Dosage: MOTHER^S DOSING
     Route: 064
  19. VALPROIC ACID [Suspect]
     Indication: MENTAL DISORDER
     Dosage: MOTHER^S DOSING
     Route: 064
  20. LEVOTHYROXINE [Concomitant]
     Dosage: MOTHER^S DOSING
     Route: 064
  21. BIPERIDEN [Concomitant]
     Dosage: MOTHER^S DOSING
     Route: 064
  22. INSULIN [Concomitant]
     Dosage: MOTHER^S DOSING
     Route: 064
  23. DEXAMETHASONE [Concomitant]
     Dosage: MOTHER^S DOSING
     Route: 064

REACTIONS (2)
  - Foetal exposure during pregnancy [Recovered/Resolved]
  - Apgar score low [Unknown]
